FAERS Safety Report 19454029 (Version 2)
Quarter: 2021Q3

REPORT INFORMATION
  Report Type: Spontaneous
  Country: AT (occurrence: AT)
  Receive Date: 20210623
  Receipt Date: 20210714
  Transmission Date: 20211014
  Serious: Yes (Other)
  Sender: FDA-Public Use
  Company Number: AT-ROCHE-2854273

PATIENT
  Sex: Female

DRUGS (9)
  1. NIVOLUMAB [Concomitant]
     Active Substance: NIVOLUMAB
  2. CISPLATIN. [Concomitant]
     Active Substance: CISPLATIN
  3. PEMETREXED. [Concomitant]
     Active Substance: PEMETREXED
  4. PREDNISONE. [Concomitant]
     Active Substance: PREDNISONE
  5. DOCETAXEL. [Concomitant]
     Active Substance: DOCETAXEL
  6. VARGATEF [Concomitant]
     Active Substance: NINTEDANIB
  7. TECENTRIQ [Suspect]
     Active Substance: ATEZOLIZUMAB
     Indication: PRODUCT USED FOR UNKNOWN INDICATION
     Dosage: DOSE 1200MG 20ML?07/SEP/2020, 05/OCT/2020, 02/NOV/2020, 30/NOV/2020, 28/DEC/2020, 27/JAN/2021, 15/MA
     Route: 041
     Dates: start: 20200810
  8. THIAMAZOLE [Concomitant]
     Active Substance: METHIMAZOLE
  9. NACL [Concomitant]
     Active Substance: SODIUM CHLORIDE

REACTIONS (2)
  - Hemiparesis [Unknown]
  - Therapeutic response delayed [Unknown]
